FAERS Safety Report 6690884-9 (Version None)
Quarter: 2010Q2

REPORT INFORMATION
  Report Type: 
  Country: None (occurrence: None)
  Receive Date: 20100421
  Receipt Date: 20100414
  Transmission Date: 20101027
  Serious: Yes (Other)
  Sender: FDA-Public Use
  Company Number: US-SANOFI-AVENTIS-2010SA020270

PATIENT
  Age: 78 Year
  Sex: Female

DRUGS (4)
  1. LANTUS [Suspect]
     Indication: TYPE 2 DIABETES MELLITUS
     Dosage: 80 UNITS IN THE AM AND 70 UNITS IN THE PM
     Route: 058
     Dates: start: 20090101
  2. LANTUS [Suspect]
     Dosage: 99 UNITS IN THE MORNING AND 70 UNITS IN THE EVENING
     Route: 058
     Dates: start: 20100414
  3. SOLOSTAR [Suspect]
     Dates: start: 20090101
  4. HUMALOG [Suspect]
     Route: 065

REACTIONS (7)
  - BLOOD GLUCOSE INCREASED [None]
  - DEHYDRATION [None]
  - INFLUENZA [None]
  - OSTEOMYELITIS [None]
  - PARAESTHESIA [None]
  - SWELLING [None]
  - WEIGHT DECREASED [None]
